FAERS Safety Report 19460851 (Version 5)
Quarter: 2021Q4

REPORT INFORMATION
  Report Type: Spontaneous
  Country: US (occurrence: US)
  Receive Date: 20210625
  Receipt Date: 20211104
  Transmission Date: 20220303
  Serious: Yes (Hospitalization, Other)
  Sender: FDA-Public Use
  Company Number: US-BIOVITRUM-2021US6408

PATIENT
  Age: 10 Year
  Sex: Male

DRUGS (1)
  1. KINERET [Suspect]
     Active Substance: ANAKINRA
     Indication: Systemic lupus erythematosus
     Route: 058
     Dates: start: 20190214

REACTIONS (9)
  - Myocarditis [Unknown]
  - Pleural effusion [Unknown]
  - Fatigue [Unknown]
  - Pneumonia [Unknown]
  - Pleurisy [Unknown]
  - Ear infection [Unknown]
  - C-reactive protein increased [Unknown]
  - Sinusitis [Unknown]
  - Off label use [Unknown]

NARRATIVE: CASE EVENT DATE: 20190214
